FAERS Safety Report 23943106 (Version 4)
Quarter: 2024Q2

REPORT INFORMATION
  Report Type: Spontaneous
  Country: DE (occurrence: DE)
  Receive Date: 20240605
  Receipt Date: 20240621
  Transmission Date: 20240716
  Serious: Yes (Other)
  Sender: FDA-Public Use
  Company Number: DE-Ascend Therapeutics US, LLC-2157819

PATIENT
  Age: 49 Year
  Sex: Female

DRUGS (3)
  1. ESTROGEL [Suspect]
     Active Substance: ESTRADIOL
     Indication: Hormone replacement therapy
     Route: 062
     Dates: start: 202310
  2. ESTRADIOL HEMIHYDRATE [Suspect]
     Active Substance: ESTRADIOL HEMIHYDRATE
     Route: 062
     Dates: start: 202310
  3. PROGESTERONE [Suspect]
     Active Substance: PROGESTERONE
     Route: 048
     Dates: start: 20231017, end: 20231207

REACTIONS (4)
  - Retinal detachment [Not Recovered/Not Resolved]
  - Retinal infarction [Unknown]
  - Eye infection [Unknown]
  - Retinal haemorrhage [Unknown]

NARRATIVE: CASE EVENT DATE: 20230101
